FAERS Safety Report 10202697 (Version 2)
Quarter: 2014Q3

REPORT INFORMATION
  Report Type: Spontaneous
  Country: US (occurrence: US)
  Receive Date: 20140528
  Receipt Date: 20140827
  Transmission Date: 20150326
  Serious: Yes (Other)
  Sender: FDA-Public Use
  Company Number: US-GILEAD-2014-0103319

PATIENT
  Age: 87 Year
  Sex: Male

DRUGS (1)
  1. LETAIRIS [Suspect]
     Active Substance: AMBRISENTAN
     Indication: PULMONARY HYPERTENSION
     Dosage: 5 MG, QD
     Route: 065
     Dates: start: 20131008

REACTIONS (9)
  - Continuous positive airway pressure [Unknown]
  - Joint swelling [Unknown]
  - Dizziness [Unknown]
  - Asthma [Unknown]
  - Pulmonary arterial hypertension [Unknown]
  - Sinus disorder [Unknown]
  - Feeling abnormal [Unknown]
  - Nasal congestion [Unknown]
  - Oedema peripheral [Unknown]

NARRATIVE: CASE EVENT DATE: 20140821
